FAERS Safety Report 15483500 (Version 1)
Quarter: 2018Q4

REPORT INFORMATION
  Report Type: Spontaneous
  Country: US (occurrence: US)
  Receive Date: 20181010
  Receipt Date: 20181010
  Transmission Date: 20190205
  Serious: No
  Sender: FDA-Public Use
  Company Number: US-PFIZER INC-2018399440

PATIENT
  Sex: Female

DRUGS (1)
  1. ADVIL [Suspect]
     Active Substance: IBUPROFEN
     Indication: HERNIA PAIN
     Dosage: UNK

REACTIONS (3)
  - Abdominal discomfort [Unknown]
  - Suppressed lactation [Unknown]
  - Intentional product misuse [Unknown]
